FAERS Safety Report 11788802 (Version 1)
Quarter: 2015Q4

REPORT INFORMATION
  Report Type: Spontaneous
  Country: JP (occurrence: JP)
  Receive Date: 20151201
  Receipt Date: 20151201
  Transmission Date: 20160305
  Serious: Yes (Other)
  Sender: FDA-Public Use
  Company Number: JP-SUN PHARMACEUTICAL INDUSTRIES LTD-2015R1-106959

PATIENT
  Age: 5 Year
  Sex: Male

DRUGS (3)
  1. BEVACIZUMAB [Suspect]
     Active Substance: BEVACIZUMAB
     Indication: GLIOBLASTOMA
     Dosage: UNK
     Route: 065
  2. IRINOTECAN [Suspect]
     Active Substance: IRINOTECAN
     Indication: GLIOBLASTOMA
     Dosage: UNK
     Route: 065
  3. TEMOZOLOMIDE. [Suspect]
     Active Substance: TEMOZOLOMIDE
     Indication: GLIOBLASTOMA
     Dosage: UNK
     Route: 065

REACTIONS (4)
  - Neoplasm recurrence [None]
  - Disease recurrence [Recovered/Resolved]
  - Posterior reversible encephalopathy syndrome [Recovered/Resolved]
  - Glioblastoma [None]
